FAERS Safety Report 10476156 (Version 2)
Quarter: 2014Q4

REPORT INFORMATION
  Report Type: Spontaneous
  Country: US (occurrence: None)
  Receive Date: 20140923
  Receipt Date: 20141006
  Transmission Date: 20150528
  Serious: Yes (Other)
  Sender: FDA-Public Use
  Company Number: 2014VER00221

PATIENT
  Age: 17 Year
  Sex: Male
  Weight: 62.3 kg

DRUGS (2)
  1. MYORISAN [Suspect]
     Active Substance: ISOTRETINOIN
     Indication: ACNE
     Route: 048
     Dates: start: 20140808, end: 20140912
  2. ZOLOFT 25 MG [Concomitant]

REACTIONS (2)
  - Mood swings [None]
  - Stress [None]

NARRATIVE: CASE EVENT DATE: 20140901
